FAERS Safety Report 20895591 (Version 1)
Quarter: 2022Q2

REPORT INFORMATION
  Report Type: Spontaneous
  Country: US (occurrence: None)
  Receive Date: 20220529
  Receipt Date: 20220529
  Transmission Date: 20220721
  Serious: Yes (Disabling)
  Sender: FDA-Public Use
  Company Number: None

PATIENT
  Age: 40 Year

DRUGS (2)
  1. BUPROPION HYDROCHLORIDE SR [Suspect]
     Active Substance: BUPROPION HYDROCHLORIDE
     Dosage: FREQUENCY : DAILY;?
     Route: 048
     Dates: start: 20220228
  2. Organic Strawberries [Concomitant]
     Dates: start: 20220411, end: 20220515

REACTIONS (2)
  - Fall [None]
  - Head injury [None]

NARRATIVE: CASE EVENT DATE: 20220524
